FAERS Safety Report 7621419 (Version 5)
Quarter: 2012Q4

REPORT INFORMATION
  Report Type: 
  Country: JP (occurrence: JP)
  Receive Date: 20101008
  Receipt Date: 20121017
  Transmission Date: 20130627
  Serious: Yes (Death, Life-Threatening, Hospitalization)
  Sender: FDA-Public Use
  Company Number: JP-SHIRE-SPV1-2010-01685

PATIENT
  Age: 68 Year
  Sex: Female

DRUGS (9)
  1. 405 (LANTHANUM CARBONATE) [Suspect]
     Indication: HYPERPHOSPHATAEMIA
     Dosage: 750 mg,  other (IMMEDIATELY AFTER MEALS)
     Route: 048
     Dates: start: 20100714, end: 20100909
  2. 405 (LANTHANUM CARBONATE) [Suspect]
     Dosage: 750 mg, Unknown (after meals)
     Route: 048
     Dates: start: 20101103, end: 201206
  3. FOSRENOL [Suspect]
     Indication: HYPERPHOSPHATAEMIA
     Dosage: 500 mg, 3x/day:tid
     Route: 048
     Dates: start: 201206
  4. ROCALTROL [Concomitant]
     Indication: PRODUCT USED FOR UNKNOWN INDICATION
     Dosage: .25 ug, UNK
     Route: 048
     Dates: end: 20100919
  5. LASIX                              /00032601/ [Concomitant]
     Indication: PRODUCT USED FOR UNKNOWN INDICATION
     Dosage: 20 mg, Unknown
     Route: 048
  6. BAYASPIRIN [Concomitant]
     Indication: PRODUCT USED FOR UNKNOWN INDICATION
     Dosage: 100 mg, Unknown
     Route: 048
  7. GASTER [Concomitant]
     Indication: PRODUCT USED FOR UNKNOWN INDICATION
     Dosage: 5 mg, Unknown
     Route: 048
  8. MYSLEE [Concomitant]
     Indication: PRODUCT USED FOR UNKNOWN INDICATION
     Dosage: 5 mg, Unknown
     Route: 048
  9. EPOGIN [Concomitant]
     Indication: PRODUCT USED FOR UNKNOWN INDICATION
     Dosage: 750 IU, Unknown
     Route: 042

REACTIONS (5)
  - Death [Fatal]
  - Cardiac arrest [Fatal]
  - Gastrointestinal necrosis [Unknown]
  - Cholangitis acute [Recovering/Resolving]
  - Pancreatitis acute [Recovering/Resolving]
